FAERS Safety Report 20899577 (Version 1)
Quarter: 2022Q2

REPORT INFORMATION
  Report Type: Other
  Country: US (occurrence: None)
  Receive Date: 20220601
  Receipt Date: 20220601
  Transmission Date: 20220721
  Serious: Yes (Death)
  Sender: FDA-Public Use
  Company Number: US-ROCHE-3072161

PATIENT
  Age: 53 Year
  Sex: Female
  Weight: 83.082 kg

DRUGS (18)
  1. OCREVUS [Suspect]
     Active Substance: OCRELIZUMAB
     Indication: Multiple sclerosis
     Dosage: (PRESCRIBED AS INFUSE 300 MG IN EVERY 2 WEEKS THEN 600 MG EVERY 6 MONTHS)?DATE OF TREATMENT: 28/JUN/
     Route: 065
     Dates: start: 20190614, end: 20211220
  2. RITUXAN [Suspect]
     Active Substance: RITUXIMAB
     Indication: Multiple sclerosis
     Route: 065
  3. DALFAMPRIDINE [Concomitant]
     Active Substance: DALFAMPRIDINE
  4. ROSUVASTATIN CALCIUM [Concomitant]
     Active Substance: ROSUVASTATIN CALCIUM
  5. NOVOLOG [Concomitant]
     Active Substance: INSULIN ASPART
  6. CYCLOSPORINE [Concomitant]
     Active Substance: CYCLOSPORINE
  7. CYANOCOBALAMIN [Concomitant]
     Active Substance: CYANOCOBALAMIN
  8. SOLIFENACIN SUCCINATE [Concomitant]
     Active Substance: SOLIFENACIN SUCCINATE
  9. LIRAGLUTIDE [Concomitant]
     Active Substance: LIRAGLUTIDE
  10. DULOXETINE HYDROCHLORIDE [Concomitant]
     Active Substance: DULOXETINE HYDROCHLORIDE
  11. HYDROCHLOROTHIAZIDE\LOSARTAN POTASSIUM [Concomitant]
     Active Substance: HYDROCHLOROTHIAZIDE\LOSARTAN POTASSIUM
  12. SERTRALINE HYDROCHLORIDE [Concomitant]
     Active Substance: SERTRALINE HYDROCHLORIDE
  13. METFORMIN HYDROCHLORIDE [Concomitant]
     Active Substance: METFORMIN HYDROCHLORIDE
  14. GABAPENTIN [Concomitant]
     Active Substance: GABAPENTIN
  15. ATENOLOL [Concomitant]
     Active Substance: ATENOLOL
  16. BACLOFEN [Concomitant]
     Active Substance: BACLOFEN
  17. MYRBETRIQ [Concomitant]
     Active Substance: MIRABEGRON
  18. NYSTATIN [Concomitant]
     Active Substance: NYSTATIN

REACTIONS (3)
  - Septic shock [Fatal]
  - Off label use [Unknown]
  - Organ failure [Fatal]

NARRATIVE: CASE EVENT DATE: 20220326
